FAERS Safety Report 25648078 (Version 4)
Quarter: 2025Q4

REPORT INFORMATION
  Report Type: Spontaneous
  Country: EU (occurrence: None)
  Receive Date: 20250806
  Receipt Date: 20251204
  Transmission Date: 20260118
  Serious: Yes (Death, Hospitalization, Other)
  Sender: ORGANON
  Company Number: EU-MLMSERVICE-20250722-PI586945-00330-1

PATIENT
  Age: 59 Year
  Sex: Female
  Weight: 67.5 kg

DRUGS (13)
  1. MIRTAZAPINE [Suspect]
     Active Substance: MIRTAZAPINE
     Indication: Depression
     Dosage: 30MG ONCE A DAY, PER OS, TABLETS
  2. MIRTAZAPINE [Suspect]
     Active Substance: MIRTAZAPINE
     Dosage: 1350 MILLIGRAM, ONCE
  3. VENLAFAXINE [Suspect]
     Active Substance: VENLAFAXINE HYDROCHLORIDE
     Indication: Depression
     Dosage: 150 MG ONCE A DAY, PER OS, TABLETS
  4. VENLAFAXINE [Suspect]
     Active Substance: VENLAFAXINE HYDROCHLORIDE
     Dosage: UNK
  5. ACETAMINOPHEN [Suspect]
     Active Substance: ACETAMINOPHEN
     Dosage: TABLETS PER OS,
  6. ACETAMINOPHEN [Suspect]
     Active Substance: ACETAMINOPHEN
     Dosage: 38000 MILLIGRAM, ONCE
  7. ZOPICLONE [Suspect]
     Active Substance: ZOPICLONE
     Indication: Sleep disorder
     Dosage: 7.5 MG ONCE A DAY PER OS, TABLETS
  8. ZOPICLONE [Suspect]
     Active Substance: ZOPICLONE
     Dosage: 105 MILLIGRAM, ONCE
  9. OXAZEPAM [Suspect]
     Active Substance: OXAZEPAM
     Indication: Anxiety disorder
     Dosage: 50 MG THREE TIMES A DAY, PER OS TABLETS
  10. OXAZEPAM [Suspect]
     Active Substance: OXAZEPAM
     Dosage: 11000 MILLIGRAM, ONCE
  11. ERYTHROMYCIN [Concomitant]
     Active Substance: ERYTHROMYCIN
  12. DROPERIDOL [Concomitant]
     Active Substance: DROPERIDOL
  13. DOLASETRON [Concomitant]
     Active Substance: DOLASETRON

REACTIONS (7)
  - Coma [Fatal]
  - Multiple organ dysfunction syndrome [Fatal]
  - Intentional overdose [Fatal]
  - Toxicity to various agents [Fatal]
  - Bezoar [Fatal]
  - Shock [Fatal]
  - Diarrhoea [Fatal]

NARRATIVE: CASE EVENT DATE: 20230412
